FAERS Safety Report 7883376-2 (Version None)
Quarter: 2011Q4

REPORT INFORMATION
  Report Type: 
  Country: None (occurrence: None)
  Receive Date: 20111102
  Receipt Date: 20111102
  Transmission Date: 20120403
  Serious: Yes (Other)
  Sender: FDA-Public Use
  Company Number: None

PATIENT
  Sex: Female
  Weight: 58.967 kg

DRUGS (2)
  1. BEYAZ [Suspect]
     Indication: CONTRACEPTION
  2. BEYAZ [Suspect]
     Indication: OVARIAN CYST

REACTIONS (2)
  - PRODUCT SUBSTITUTION ISSUE [None]
  - VERTIGO [None]
